FAERS Safety Report 7880565-8 (Version None)
Quarter: 2011Q4

REPORT INFORMATION
  Report Type: 
  Country: None (occurrence: None)
  Receive Date: 20111101
  Receipt Date: 20101027
  Transmission Date: 20120403
  Serious: No
  Sender: FDA-Public Use
  Company Number: US-BAYER-201039742NA

PATIENT
  Age: 65 Year
  Sex: Female
  Weight: 64.545 kg

DRUGS (5)
  1. READI-CAT [Concomitant]
     Route: 048
     Dates: start: 20101027, end: 20101027
  2. ULTRAVIST 300 [Suspect]
     Indication: COMPUTERISED TOMOGRAM ABDOMEN
  3. ULTRAVIST 300 [Suspect]
     Indication: LYMPHOMA
     Dosage: RIGHT CHEST VIA MEDIPORT USING POWER INJECTOR @ A RATE OF 1.0 CC/SECOND AND A WARMER
     Route: 042
     Dates: start: 20101027, end: 20101027
  4. NEXIUM [Concomitant]
  5. ALLOPURINOL [Concomitant]

REACTIONS (2)
  - ERYTHEMA [None]
  - FLUSHING [None]
